FAERS Safety Report 8131676-3 (Version None)
Quarter: 2012Q1

REPORT INFORMATION
  Report Type: 
  Country: None (occurrence: None)
  Receive Date: 20120208
  Receipt Date: 20120123
  Transmission Date: 20120608
  Serious: Yes (Death)
  Sender: FDA-Public Use
  Company Number: OPIR20110077

PATIENT
  Age: 29 Year
  Sex: Male
  Weight: 74 kg

DRUGS (7)
  1. OXYCODONE HCL [Suspect]
     Indication: BACK PAIN
  2. MEPROBAMATE [Suspect]
     Indication: PRODUCT USED FOR UNKNOWN INDICATION
  3. CARISOPRODOL [Suspect]
  4. ALPRAZOLAM [Suspect]
     Indication: PRODUCT USED FOR UNKNOWN INDICATION
     Dosage: 2 MG
  5. HYDROCODONE/ACETAMINOPHEN 7.5MG/500MG (PARACETAMOL, HYDROCODONE BITART [Suspect]
     Indication: PRODUCT USED FOR UNKNOWN INDICATION
  6. SERTRALINE (SERTRALINE HYDROCHLORIDE) (UNKNOWN) (SERTRALINE HYDROCHLOR [Concomitant]
  7. OPANA [Suspect]
     Indication: BACK PAIN

REACTIONS (5)
  - TOXICITY TO VARIOUS AGENTS [None]
  - ACCIDENTAL DEATH [None]
  - PULMONARY CONGESTION [None]
  - PULMONARY OEDEMA [None]
  - HEPATIC CONGESTION [None]
